FAERS Safety Report 4274734-6 (Version None)
Quarter: 2004Q1

REPORT INFORMATION
  Report Type: 
  Country: None (occurrence: None)
  Receive Date: 20040120
  Receipt Date: 20040120
  Transmission Date: 20041129
  Serious: Yes (Life-Threatening, Hospitalization)
  Sender: FDA-Public Use
  Company Number: None

PATIENT
  Age: 56 Year
  Sex: Female
  Weight: 59.8748 kg

DRUGS (3)
  1. IRINOTECAN [Suspect]
     Indication: LUNG NEOPLASM MALIGNANT
     Dosage: 60 MG IV
     Route: 042
     Dates: start: 20031109, end: 20040113
  2. CISPLATIN [Suspect]
     Dosage: 60 MG IV
     Route: 042
     Dates: start: 20031109, end: 20040113
  3. RADIATION THERAPY [Concomitant]

REACTIONS (7)
  - BLOOD CREATININE INCREASED [None]
  - BLOOD GLUCOSE INCREASED [None]
  - BLOOD POTASSIUM INCREASED [None]
  - BLOOD PRESSURE IMMEASURABLE [None]
  - BLOOD SODIUM DECREASED [None]
  - COMA [None]
  - TREATMENT NONCOMPLIANCE [None]
